FAERS Safety Report 7503064-1 (Version None)
Quarter: 2011Q2

REPORT INFORMATION
  Report Type: 
  Country: None (occurrence: None)
  Receive Date: 20110524
  Receipt Date: 20110524
  Transmission Date: 20111010
  Serious: Yes (Hospitalization)
  Sender: FDA-Public Use
  Company Number: None

PATIENT
  Sex: Male
  Weight: 93.3 kg

DRUGS (9)
  1. AVELOX [Concomitant]
  2. REVLIMID [Suspect]
     Dosage: 25MG QD PO
     Route: 048
     Dates: start: 20101229
  3. WARFARIN SODIUM [Concomitant]
  4. AMLODIPINE [Concomitant]
  5. FINASTER DE [Concomitant]
  6. CARDUSA [Concomitant]
  7. BESYLATE [Concomitant]
  8. BENAZEPRIL CL [Concomitant]
  9. ELIGARD [Concomitant]

REACTIONS (1)
  - HAEMATURIA [None]
